FAERS Safety Report 20268322 (Version 3)
Quarter: 2022Q1

REPORT INFORMATION
  Report Type: Other
  Country: US (occurrence: None)
  Receive Date: 20211231
  Receipt Date: 20220211
  Transmission Date: 20220423
  Serious: Yes (Other)
  Sender: FDA-Public Use
  Company Number: US-ROCHE-2986919

PATIENT
  Sex: Female

DRUGS (4)
  1. XELODA [Suspect]
     Active Substance: CAPECITABINE
     Indication: Breast cancer metastatic
     Dosage: TAKE 2 TABLET(S) BY MOUTH EVERY 12 HOURS AS DIRECTED FOR 7 DAYS ON THEN 7 DAYS OFF
     Route: 048
     Dates: start: 20211205
  2. XELODA [Suspect]
     Active Substance: CAPECITABINE
     Indication: Metastases to bone
  3. CALCIUM VITAMIN D3 [Concomitant]
  4. OXYCODONE [Concomitant]
     Active Substance: OXYCODONE

REACTIONS (1)
  - Recurrent cancer [Unknown]
